FAERS Safety Report 13023672 (Version 1)
Quarter: 2016Q4

REPORT INFORMATION
  Report Type: Spontaneous
  Country: US (occurrence: US)
  Receive Date: 20161213
  Receipt Date: 20161213
  Transmission Date: 20170207
  Serious: No
  Sender: FDA-Public Use
  Company Number: None

PATIENT
  Age: 27 Year
  Sex: Female
  Weight: 61.74 kg

DRUGS (1)
  1. GENERIC KEPPRA 100MG/ML [Suspect]
     Active Substance: LEVETIRACETAM
     Indication: EPILEPSY
     Dosage: 15 ML AM/6ML PM DAILY PO
     Route: 048
     Dates: start: 2011

REACTIONS (2)
  - Seizure [None]
  - Product substitution issue [None]
